FAERS Safety Report 24301741 (Version 2)
Quarter: 2024Q3

REPORT INFORMATION
  Report Type: Spontaneous
  Country: JP (occurrence: JP)
  Receive Date: 20240910
  Receipt Date: 20240918
  Transmission Date: 20241016
  Serious: No
  Sender: UCB
  Company Number: JP-UCBJ-CD202408077UCBPHAPROD

PATIENT
  Age: 8 Decade
  Sex: Female

DRUGS (1)
  1. VIMPAT [Suspect]
     Active Substance: LACOSAMIDE
     Indication: Product used for unknown indication
     Dosage: 150 MILLIGRAM, 2X/DAY (BID)
     Route: 048

REACTIONS (1)
  - Heat illness [Unknown]
